FAERS Safety Report 22614098 (Version 1)
Quarter: 2023Q2

REPORT INFORMATION
  Report Type: Spontaneous
  Country: CA (occurrence: CA)
  Receive Date: 20230619
  Receipt Date: 20230619
  Transmission Date: 20230722
  Serious: Yes (Other)
  Sender: FDA-Public Use
  Company Number: CA-ORGANON-O2306CAN001988

PATIENT
  Sex: Male

DRUGS (4)
  1. PREGNYL [Suspect]
     Active Substance: CHORIOGONADOTROPIN ALFA
     Indication: Oestradiol decreased
     Dosage: UNK; DOSAGE FORM: POWDER FOR SOLUTION INTRAMUSCULAR
     Route: 065
  2. PREGNYL [Suspect]
     Active Substance: CHORIOGONADOTROPIN ALFA
     Indication: Blood testosterone decreased
  3. STERILE WATER FOR INJECTION [Suspect]
     Active Substance: WATER
     Indication: Oestradiol decreased
     Dosage: UNK; DOSAGE FORM: POWDER FOR SOLUTION INTRAMUSCULAR
     Route: 065
  4. STERILE WATER FOR INJECTION [Suspect]
     Active Substance: WATER
     Indication: Blood testosterone decreased

REACTIONS (9)
  - Apathy [Unknown]
  - Asthenia [Unknown]
  - Chills [Unknown]
  - Depressed level of consciousness [Unknown]
  - Depressed mood [Unknown]
  - Fatigue [Unknown]
  - Feeling abnormal [Unknown]
  - Incorrect dose administered [Unknown]
  - Irritability [Unknown]
